FAERS Safety Report 4624168-7 (Version None)
Quarter: 2005Q1

REPORT INFORMATION
  Report Type: 
  Country: None (occurrence: None)
  Receive Date: 20050324
  Receipt Date: 20050324
  Transmission Date: 20050727
  Serious: Yes (Death)
  Sender: FDA-Public Use
  Company Number: None

PATIENT
  Age: 51 Year
  Sex: Female

DRUGS (6)
  1. NEURONTIN [Suspect]
     Indication: FIBROMYALGIA
     Dosage: 1200 MG DAILY ORAL
     Route: 048
     Dates: start: 20010101, end: 20010625
  2. SONATA [Concomitant]
  3. ACTONEL [Concomitant]
  4. MOFIC [Concomitant]
  5. IMITREX [Concomitant]
  6. INDOMETHACIN [Concomitant]

REACTIONS (2)
  - COMPLETED SUICIDE [None]
  - OVERDOSE [None]
